FAERS Safety Report 6997277-5 (Version None)
Quarter: 2010Q3

REPORT INFORMATION
  Report Type: 
  Country: None (occurrence: None)
  Receive Date: 20100918
  Receipt Date: 20090922
  Transmission Date: 20110219
  Serious: No
  Sender: FDA-Public Use
  Company Number: US-WYE-H11170509

PATIENT
  Sex: Female
  Weight: 47.67 kg

DRUGS (2)
  1. PREMPRO [Suspect]
     Indication: HORMONE THERAPY
     Dosage: 0.625 MG/ 2.5 MG (FREQUENCY UNSPECIFIED)
     Route: 048
  2. NAPROSYN [Concomitant]

REACTIONS (1)
  - DRY MOUTH [None]
